FAERS Safety Report 8739725 (Version 4)
Quarter: 2013Q1

REPORT INFORMATION
  Report Type: Report from Study
  Country: AU (occurrence: AU)
  Receive Date: 20120823
  Receipt Date: 20130228
  Transmission Date: 20140127
  Serious: Yes (Death, Hospitalization, Other)
  Sender: FDA-Public Use
  Company Number: AU-CELGENEUS-008-20785-12081597

PATIENT
  Age: 63 Year
  Sex: Male

DRUGS (11)
  1. THALIDOMIDE [Suspect]
     Indication: CHRONIC MYELOMONOCYTIC LEUKAEMIA
     Dosage: 100 MILLIGRAM
     Route: 048
     Dates: start: 20080905, end: 20090821
  2. THALIDOMIDE [Suspect]
     Indication: MYELODYSPLASTIC SYNDROME
     Route: 065
  3. VIDAZA [Suspect]
     Indication: CHRONIC MYELOMONOCYTIC LEUKAEMIA
     Dosage: 75 MILLIGRAM/SQ. METER
     Route: 065
     Dates: start: 20080905, end: 20090821
  4. VIDAZA [Suspect]
     Indication: MYELODYSPLASTIC SYNDROME
     Dosage: 50% DOSE REDUCTION
     Route: 065
  5. FLUDARABINE [Concomitant]
     Indication: PRODUCT USED FOR UNKNOWN INDICATION
     Route: 065
  6. CYTARABINE [Concomitant]
     Indication: PRODUCT USED FOR UNKNOWN INDICATION
     Route: 065
  7. METOCLOPRAMIDE [Concomitant]
     Indication: PRODUCT USED FOR UNKNOWN INDICATION
     Route: 065
     Dates: start: 20080905, end: 20080906
  8. COLOXYL WITH SENNA [Concomitant]
     Indication: PRODUCT USED FOR UNKNOWN INDICATION
     Route: 065
     Dates: start: 20080905
  9. ONDANSETRON [Concomitant]
     Indication: PRODUCT USED FOR UNKNOWN INDICATION
     Dosage: 8 MILLIGRAM
     Route: 065
     Dates: start: 20080908
  10. AMLODIPINE [Concomitant]
     Indication: PRODUCT USED FOR UNKNOWN INDICATION
     Dosage: 5 MILLIGRAM
     Route: 065
     Dates: start: 20080909
  11. GLIPIZDE [Concomitant]
     Indication: PRODUCT USED FOR UNKNOWN INDICATION
     Dosage: 5 MILLIGRAM
     Route: 065

REACTIONS (20)
  - Pseudomonal sepsis [Unknown]
  - Febrile neutropenia [Unknown]
  - Febrile neutropenia [Unknown]
  - Febrile neutropenia [Unknown]
  - Rash [Recovered/Resolved]
  - Cardiac failure [Fatal]
  - Chronic myeloid leukaemia transformation [Fatal]
  - Coronary artery stenosis [Recovered/Resolved]
  - Arteritis coronary [Recovered/Resolved]
  - Pancytopenia [Recovered/Resolved]
  - Thrombosis in device [Recovered/Resolved with Sequelae]
  - Malignant hypertension [Unknown]
  - Joint swelling [Recovered/Resolved]
  - Constipation [Unknown]
  - Neutropenia [Unknown]
  - Disease recurrence [Unknown]
  - Headache [Unknown]
  - Intermittent claudication [Unknown]
  - Inflammatory marker increased [Unknown]
  - Hyperhidrosis [Unknown]
